FAERS Safety Report 8544047-2 (Version None)
Quarter: 2012Q3

REPORT INFORMATION
  Report Type: 
  Country: None (occurrence: None)
  Receive Date: 20120727
  Receipt Date: 20120718
  Transmission Date: 20120928
  Serious: Yes (Hospitalization)
  Sender: FDA-Public Use
  Company Number: ES-ABBOTT-12P-144-0957791-01

PATIENT
  Age: 32 Year
  Sex: Male

DRUGS (4)
  1. PREDNISONE TAB [Concomitant]
     Indication: CROHN'S DISEASE
     Dates: start: 20090903, end: 20091119
  2. PREDNISONE TAB [Concomitant]
     Dates: start: 20100303
  3. HUMIRA [Suspect]
     Indication: CROHN'S DISEASE
     Route: 058
     Dates: start: 20080110, end: 20100514
  4. METHOTREXATE [Concomitant]
     Indication: CROHN'S DISEASE
     Dosage: PER WEEK
     Dates: start: 20120202

REACTIONS (1)
  - CROHN'S DISEASE [None]
